FAERS Safety Report 6441091-6 (Version None)
Quarter: 2009Q4

REPORT INFORMATION
  Report Type: 
  Country: None (occurrence: None)
  Receive Date: 20091116
  Receipt Date: 20091106
  Transmission Date: 20100525
  Serious: Yes (Other)
  Sender: FDA-Public Use
  Company Number: US-NOVOPROD-300442

PATIENT
  Sex: Male

DRUGS (2)
  1. NOVOLOG [Suspect]
     Indication: DIABETES MELLITUS
     Dosage: SLIDING SCALE
     Route: 058
     Dates: start: 20040101
  2. LANTUS [Concomitant]
     Indication: DIABETES MELLITUS
     Dosage: 20 IU, QD
     Route: 058

REACTIONS (1)
  - CATARACT [None]
